FAERS Safety Report 4593834-4 (Version None)
Quarter: 2005Q1

REPORT INFORMATION
  Report Type: 
  Country: None (occurrence: None)
  Receive Date: 20050301
  Receipt Date: 20050222
  Transmission Date: 20050727
  Serious: Yes (Hospitalization)
  Sender: FDA-Public Use
  Company Number: US-JNJFOC-20050205922

PATIENT
  Sex: Female

DRUGS (3)
  1. DURAGESIC-100 [Suspect]
     Route: 062
     Dates: start: 20010301
  2. PERCOCET [Concomitant]
     Route: 049
     Dates: start: 20010101
  3. PERCOCET [Concomitant]
     Indication: PAIN
     Dosage: 10/325 MG, UP TO 6 TABLETS PER DAY, PRN
     Route: 049
     Dates: start: 20010101

REACTIONS (1)
  - SPINAL FUSION SURGERY [None]
